FAERS Safety Report 20148964 (Version 3)
Quarter: 2022Q4

REPORT INFORMATION
  Report Type: Report from Study
  Country: US (occurrence: US)
  Receive Date: 20211204
  Receipt Date: 20221022
  Transmission Date: 20230112
  Serious: No
  Sender: FDA-Public Use
  Company Number: US-NOVARTISTESTPH-NVSC2021US276895

PATIENT
  Age: 11 Year
  Sex: Female

DRUGS (2)
  1. ILARIS [Suspect]
     Active Substance: CANAKINUMAB
     Indication: Pyrexia
     Dosage: 150 MG, QMO
     Route: 058
     Dates: start: 20180705
  2. ILARIS [Suspect]
     Active Substance: CANAKINUMAB
     Dosage: 150 MG, (EVERY 4 WEEKS), OTHER
     Route: 058

REACTIONS (5)
  - COVID-19 [Recovered/Resolved]
  - Malaise [Unknown]
  - Sinusitis [Recovering/Resolving]
  - Urinary tract infection [Unknown]
  - Illness [Unknown]

NARRATIVE: CASE EVENT DATE: 20221001
